FAERS Safety Report 14591418 (Version 1)
Quarter: 2018Q1

REPORT INFORMATION
  Report Type: Spontaneous
  Country: US (occurrence: US)
  Receive Date: 20180301
  Receipt Date: 20180301
  Transmission Date: 20180509
  Serious: No
  Sender: FDA-Public Use
  Company Number: None

PATIENT
  Age: 39 Year
  Sex: Male
  Weight: 75.6 kg

DRUGS (1)
  1. DAPTOMYCIN 500MG [Suspect]
     Active Substance: DAPTOMYCIN
     Indication: OSTEOMYELITIS
     Dosage: 500MG/NS 100ML Q24H IV PUSH
     Route: 042
     Dates: start: 20180202, end: 20180204

REACTIONS (2)
  - Chills [None]
  - Pyrexia [None]

NARRATIVE: CASE EVENT DATE: 20180204
